FAERS Safety Report 5372088-5 (Version None)
Quarter: 2007Q2

REPORT INFORMATION
  Report Type: 
  Country: None (occurrence: None)
  Receive Date: 20070615
  Receipt Date: 20070501
  Transmission Date: 20071010
  Serious: Yes (Other)
  Sender: FDA-Public Use
  Company Number: SP01218

PATIENT
  Age: 47 Year
  Sex: Female
  Weight: 49.8957 kg

DRUGS (1)
  1. XIFAXAN [Suspect]
     Indication: COLITIS
     Dosage: 800 MG (400 MG, 2 IN 1 D), ORAL
     Route: 048
     Dates: start: 20070426, end: 20070430

REACTIONS (3)
  - ABDOMINAL PAIN [None]
  - HEADACHE [None]
  - TETANY [None]
